FAERS Safety Report 26042366 (Version 2)
Quarter: 2025Q4

REPORT INFORMATION
  Report Type: Spontaneous
  Country: RU (occurrence: RU)
  Receive Date: 20251113
  Receipt Date: 20251125
  Transmission Date: 20260118
  Serious: Yes (Death, Hospitalization, Other)
  Sender: MYLAN
  Company Number: RU-MYLANLABS-2025M1096556

PATIENT
  Age: 22 Year
  Sex: Male

DRUGS (108)
  1. ARIXTRA [Suspect]
     Active Substance: FONDAPARINUX SODIUM
     Indication: Deep vein thrombosis
     Dosage: UNK
     Route: 065
  2. ARIXTRA [Suspect]
     Active Substance: FONDAPARINUX SODIUM
     Dosage: UNK
  3. ARIXTRA [Suspect]
     Active Substance: FONDAPARINUX SODIUM
     Dosage: UNK
  4. ARIXTRA [Suspect]
     Active Substance: FONDAPARINUX SODIUM
     Dosage: UNK
     Route: 065
  5. ARIXTRA [Suspect]
     Active Substance: FONDAPARINUX SODIUM
     Dosage: UNK
     Route: 065
     Dates: start: 20241107, end: 20241120
  6. ARIXTRA [Suspect]
     Active Substance: FONDAPARINUX SODIUM
     Dosage: UNK
     Dates: start: 20241107, end: 20241120
  7. ARIXTRA [Suspect]
     Active Substance: FONDAPARINUX SODIUM
     Dosage: UNK
     Dates: start: 20241107, end: 20241120
  8. ARIXTRA [Suspect]
     Active Substance: FONDAPARINUX SODIUM
     Dosage: UNK
     Route: 065
     Dates: start: 20241107, end: 20241120
  9. ARIXTRA [Suspect]
     Active Substance: FONDAPARINUX SODIUM
     Dosage: UNK
     Dates: start: 20241125, end: 20241128
  10. ARIXTRA [Suspect]
     Active Substance: FONDAPARINUX SODIUM
     Dosage: UNK
     Dates: start: 20241125, end: 20241128
  11. ARIXTRA [Suspect]
     Active Substance: FONDAPARINUX SODIUM
     Dosage: UNK
     Route: 065
     Dates: start: 20241125, end: 20241128
  12. ARIXTRA [Suspect]
     Active Substance: FONDAPARINUX SODIUM
     Dosage: UNK
     Route: 065
     Dates: start: 20241125, end: 20241128
  13. ARIXTRA [Suspect]
     Active Substance: FONDAPARINUX SODIUM
     Dosage: UNK
     Dates: start: 20241129, end: 20241209
  14. ARIXTRA [Suspect]
     Active Substance: FONDAPARINUX SODIUM
     Dosage: UNK
     Dates: start: 20241129, end: 20241209
  15. ARIXTRA [Suspect]
     Active Substance: FONDAPARINUX SODIUM
     Dosage: UNK
     Route: 065
     Dates: start: 20241129, end: 20241209
  16. ARIXTRA [Suspect]
     Active Substance: FONDAPARINUX SODIUM
     Dosage: UNK
     Route: 065
     Dates: start: 20241129, end: 20241209
  17. HEPARIN [Suspect]
     Active Substance: HEPARIN SODIUM
     Indication: Deep vein thrombosis
     Dosage: UNK
     Route: 065
     Dates: start: 20241012, end: 20241101
  18. HEPARIN [Suspect]
     Active Substance: HEPARIN SODIUM
     Dosage: UNK
     Dates: start: 20241012, end: 20241101
  19. HEPARIN [Suspect]
     Active Substance: HEPARIN SODIUM
     Dosage: UNK
     Dates: start: 20241012, end: 20241101
  20. HEPARIN [Suspect]
     Active Substance: HEPARIN SODIUM
     Dosage: UNK
     Route: 065
     Dates: start: 20241012, end: 20241101
  21. HEPARIN [Suspect]
     Active Substance: HEPARIN SODIUM
     Dosage: UNK
     Route: 065
     Dates: start: 20241107, end: 20241120
  22. HEPARIN [Suspect]
     Active Substance: HEPARIN SODIUM
     Dosage: UNK
     Dates: start: 20241107, end: 20241120
  23. HEPARIN [Suspect]
     Active Substance: HEPARIN SODIUM
     Dosage: UNK
     Dates: start: 20241107, end: 20241120
  24. HEPARIN [Suspect]
     Active Substance: HEPARIN SODIUM
     Dosage: UNK
     Route: 065
     Dates: start: 20241107, end: 20241120
  25. HEPARIN [Suspect]
     Active Substance: HEPARIN SODIUM
     Dosage: UNK
     Dates: start: 20241125, end: 20241128
  26. HEPARIN [Suspect]
     Active Substance: HEPARIN SODIUM
     Dosage: UNK
     Dates: start: 20241125, end: 20241128
  27. HEPARIN [Suspect]
     Active Substance: HEPARIN SODIUM
     Dosage: UNK
     Route: 065
     Dates: start: 20241125, end: 20241128
  28. HEPARIN [Suspect]
     Active Substance: HEPARIN SODIUM
     Dosage: UNK
     Route: 065
     Dates: start: 20241125, end: 20241128
  29. HEPARIN [Suspect]
     Active Substance: HEPARIN SODIUM
     Dosage: UNK
     Dates: start: 20241129, end: 20241209
  30. HEPARIN [Suspect]
     Active Substance: HEPARIN SODIUM
     Dosage: UNK
     Dates: start: 20241129, end: 20241209
  31. HEPARIN [Suspect]
     Active Substance: HEPARIN SODIUM
     Dosage: UNK
     Route: 065
     Dates: start: 20241129, end: 20241209
  32. HEPARIN [Suspect]
     Active Substance: HEPARIN SODIUM
     Dosage: UNK
     Route: 065
     Dates: start: 20241129, end: 20241209
  33. ASPIRIN [Suspect]
     Active Substance: ASPIRIN
     Indication: Deep vein thrombosis
     Dosage: UNK
     Route: 065
     Dates: start: 20241012, end: 20241101
  34. ASPIRIN [Suspect]
     Active Substance: ASPIRIN
     Dosage: UNK
     Dates: start: 20241012, end: 20241101
  35. ASPIRIN [Suspect]
     Active Substance: ASPIRIN
     Dosage: UNK
     Dates: start: 20241012, end: 20241101
  36. ASPIRIN [Suspect]
     Active Substance: ASPIRIN
     Dosage: UNK
     Route: 065
     Dates: start: 20241012, end: 20241101
  37. ASPIRIN [Suspect]
     Active Substance: ASPIRIN
     Dosage: UNK
     Route: 065
     Dates: start: 20241107, end: 20241120
  38. ASPIRIN [Suspect]
     Active Substance: ASPIRIN
     Dosage: UNK
     Dates: start: 20241107, end: 20241120
  39. ASPIRIN [Suspect]
     Active Substance: ASPIRIN
     Dosage: UNK
     Dates: start: 20241107, end: 20241120
  40. ASPIRIN [Suspect]
     Active Substance: ASPIRIN
     Dosage: UNK
     Route: 065
     Dates: start: 20241107, end: 20241120
  41. ASPIRIN [Suspect]
     Active Substance: ASPIRIN
     Dosage: UNK
     Dates: start: 20241125, end: 20241128
  42. ASPIRIN [Suspect]
     Active Substance: ASPIRIN
     Dosage: UNK
     Dates: start: 20241125, end: 20241128
  43. ASPIRIN [Suspect]
     Active Substance: ASPIRIN
     Dosage: UNK
     Route: 065
     Dates: start: 20241125, end: 20241128
  44. ASPIRIN [Suspect]
     Active Substance: ASPIRIN
     Dosage: UNK
     Route: 065
     Dates: start: 20241125, end: 20241128
  45. ASPIRIN [Suspect]
     Active Substance: ASPIRIN
     Dosage: UNK
     Dates: start: 20241129, end: 20241209
  46. ASPIRIN [Suspect]
     Active Substance: ASPIRIN
     Dosage: UNK
     Dates: start: 20241129, end: 20241209
  47. ASPIRIN [Suspect]
     Active Substance: ASPIRIN
     Dosage: UNK
     Route: 065
     Dates: start: 20241129, end: 20241209
  48. ASPIRIN [Suspect]
     Active Substance: ASPIRIN
     Dosage: UNK
     Route: 065
     Dates: start: 20241129, end: 20241209
  49. MELDONIUM [Suspect]
     Active Substance: MELDONIUM
     Indication: Deep vein thrombosis
     Dosage: UNK
     Route: 065
     Dates: start: 20241012, end: 20241101
  50. MELDONIUM [Suspect]
     Active Substance: MELDONIUM
     Dosage: UNK
     Dates: start: 20241012, end: 20241101
  51. MELDONIUM [Suspect]
     Active Substance: MELDONIUM
     Dosage: UNK
     Dates: start: 20241012, end: 20241101
  52. MELDONIUM [Suspect]
     Active Substance: MELDONIUM
     Dosage: UNK
     Route: 065
     Dates: start: 20241012, end: 20241101
  53. MELDONIUM [Suspect]
     Active Substance: MELDONIUM
     Dosage: UNK
     Route: 065
     Dates: start: 20241107, end: 20241120
  54. MELDONIUM [Suspect]
     Active Substance: MELDONIUM
     Dosage: UNK
     Dates: start: 20241107, end: 20241120
  55. MELDONIUM [Suspect]
     Active Substance: MELDONIUM
     Dosage: UNK
     Dates: start: 20241107, end: 20241120
  56. MELDONIUM [Suspect]
     Active Substance: MELDONIUM
     Dosage: UNK
     Route: 065
     Dates: start: 20241107, end: 20241120
  57. MELDONIUM [Suspect]
     Active Substance: MELDONIUM
     Dosage: UNK
     Dates: start: 20241125, end: 20241128
  58. MELDONIUM [Suspect]
     Active Substance: MELDONIUM
     Dosage: UNK
     Dates: start: 20241125, end: 20241128
  59. MELDONIUM [Suspect]
     Active Substance: MELDONIUM
     Dosage: UNK
     Route: 065
     Dates: start: 20241125, end: 20241128
  60. MELDONIUM [Suspect]
     Active Substance: MELDONIUM
     Dosage: UNK
     Route: 065
     Dates: start: 20241125, end: 20241128
  61. MELDONIUM [Suspect]
     Active Substance: MELDONIUM
     Dosage: UNK
     Dates: start: 20241129, end: 20241209
  62. MELDONIUM [Suspect]
     Active Substance: MELDONIUM
     Dosage: UNK
     Dates: start: 20241129, end: 20241209
  63. MELDONIUM [Suspect]
     Active Substance: MELDONIUM
     Dosage: UNK
     Route: 065
     Dates: start: 20241129, end: 20241209
  64. MELDONIUM [Suspect]
     Active Substance: MELDONIUM
     Dosage: UNK
     Route: 065
     Dates: start: 20241129, end: 20241209
  65. ENOXAPARIN SODIUM [Suspect]
     Active Substance: ENOXAPARIN SODIUM
     Indication: Deep vein thrombosis
     Dosage: UNK
  66. ENOXAPARIN SODIUM [Suspect]
     Active Substance: ENOXAPARIN SODIUM
     Dosage: UNK
     Route: 065
  67. ENOXAPARIN SODIUM [Suspect]
     Active Substance: ENOXAPARIN SODIUM
     Dosage: UNK
     Route: 065
  68. ENOXAPARIN SODIUM [Suspect]
     Active Substance: ENOXAPARIN SODIUM
     Dosage: UNK
  69. INOSINE\NIACINAMIDE\RIBOFLAVIN\SUCCINIC ACID [Suspect]
     Active Substance: INOSINE\NIACINAMIDE\RIBOFLAVIN\SUCCINIC ACID
     Indication: Deep vein thrombosis
     Dosage: UNK
  70. INOSINE\NIACINAMIDE\RIBOFLAVIN\SUCCINIC ACID [Suspect]
     Active Substance: INOSINE\NIACINAMIDE\RIBOFLAVIN\SUCCINIC ACID
     Dosage: UNK
     Route: 065
  71. INOSINE\NIACINAMIDE\RIBOFLAVIN\SUCCINIC ACID [Suspect]
     Active Substance: INOSINE\NIACINAMIDE\RIBOFLAVIN\SUCCINIC ACID
     Dosage: UNK
     Route: 065
  72. INOSINE\NIACINAMIDE\RIBOFLAVIN\SUCCINIC ACID [Suspect]
     Active Substance: INOSINE\NIACINAMIDE\RIBOFLAVIN\SUCCINIC ACID
     Dosage: UNK
  73. EMOXYPINE SUCCINATE [Suspect]
     Active Substance: EMOXYPINE SUCCINATE
     Indication: Deep vein thrombosis
     Dosage: UNK
  74. EMOXYPINE SUCCINATE [Suspect]
     Active Substance: EMOXYPINE SUCCINATE
     Dosage: UNK
     Route: 065
  75. EMOXYPINE SUCCINATE [Suspect]
     Active Substance: EMOXYPINE SUCCINATE
     Dosage: UNK
     Route: 065
  76. EMOXYPINE SUCCINATE [Suspect]
     Active Substance: EMOXYPINE SUCCINATE
     Dosage: UNK
  77. DEXTRAN\SODIUM CHLORIDE [Suspect]
     Active Substance: DEXTRAN\SODIUM CHLORIDE
     Indication: Deep vein thrombosis
     Dosage: UNK
  78. DEXTRAN\SODIUM CHLORIDE [Suspect]
     Active Substance: DEXTRAN\SODIUM CHLORIDE
     Dosage: UNK
     Route: 065
  79. DEXTRAN\SODIUM CHLORIDE [Suspect]
     Active Substance: DEXTRAN\SODIUM CHLORIDE
     Dosage: UNK
     Route: 065
  80. DEXTRAN\SODIUM CHLORIDE [Suspect]
     Active Substance: DEXTRAN\SODIUM CHLORIDE
     Dosage: UNK
  81. OMEPRAZOLE [Suspect]
     Active Substance: OMEPRAZOLE
     Indication: Deep vein thrombosis
     Dosage: UNK
  82. OMEPRAZOLE [Suspect]
     Active Substance: OMEPRAZOLE
     Dosage: UNK
     Route: 065
  83. OMEPRAZOLE [Suspect]
     Active Substance: OMEPRAZOLE
     Dosage: UNK
     Route: 065
  84. OMEPRAZOLE [Suspect]
     Active Substance: OMEPRAZOLE
     Dosage: UNK
  85. ASPIRIN [Suspect]
     Active Substance: ASPIRIN
     Indication: Deep vein thrombosis
     Dosage: UNK
  86. ASPIRIN [Suspect]
     Active Substance: ASPIRIN
     Dosage: UNK
     Route: 065
  87. ASPIRIN [Suspect]
     Active Substance: ASPIRIN
     Dosage: UNK
     Route: 065
  88. ASPIRIN [Suspect]
     Active Substance: ASPIRIN
     Dosage: UNK
  89. OXYGEN [Suspect]
     Active Substance: OXYGEN
     Indication: Deep vein thrombosis
     Dosage: UNK
  90. OXYGEN [Suspect]
     Active Substance: OXYGEN
     Dosage: UNK
     Route: 065
  91. OXYGEN [Suspect]
     Active Substance: OXYGEN
     Dosage: UNK
     Route: 065
  92. OXYGEN [Suspect]
     Active Substance: OXYGEN
     Dosage: UNK
  93. NEBIVOLOL [Suspect]
     Active Substance: NEBIVOLOL
     Indication: Deep vein thrombosis
     Dosage: UNK
  94. NEBIVOLOL [Suspect]
     Active Substance: NEBIVOLOL
     Dosage: UNK
     Route: 065
  95. NEBIVOLOL [Suspect]
     Active Substance: NEBIVOLOL
     Dosage: UNK
     Route: 065
  96. NEBIVOLOL [Suspect]
     Active Substance: NEBIVOLOL
     Dosage: UNK
  97. SPIRONOLACTONE [Suspect]
     Active Substance: SPIRONOLACTONE
     Indication: Deep vein thrombosis
     Dosage: UNK
  98. SPIRONOLACTONE [Suspect]
     Active Substance: SPIRONOLACTONE
     Dosage: UNK
     Route: 065
  99. SPIRONOLACTONE [Suspect]
     Active Substance: SPIRONOLACTONE
     Dosage: UNK
     Route: 065
  100. SPIRONOLACTONE [Suspect]
     Active Substance: SPIRONOLACTONE
     Dosage: UNK
  101. XARELTO [Suspect]
     Active Substance: RIVAROXABAN
     Indication: Deep vein thrombosis
     Dosage: UNK
  102. XARELTO [Suspect]
     Active Substance: RIVAROXABAN
     Dosage: UNK
     Route: 065
  103. XARELTO [Suspect]
     Active Substance: RIVAROXABAN
     Dosage: UNK
     Route: 065
  104. XARELTO [Suspect]
     Active Substance: RIVAROXABAN
     Dosage: UNK
  105. ASPIRIN [Concomitant]
     Active Substance: ASPIRIN
     Dosage: UNK
     Dates: start: 20240913, end: 20240924
  106. ASPIRIN [Concomitant]
     Active Substance: ASPIRIN
     Dosage: UNK
     Route: 065
     Dates: start: 20240913, end: 20240924
  107. ASPIRIN [Concomitant]
     Active Substance: ASPIRIN
     Dosage: UNK
     Route: 065
     Dates: start: 20240913, end: 20240924
  108. ASPIRIN [Concomitant]
     Active Substance: ASPIRIN
     Dosage: UNK
     Dates: start: 20240913, end: 20240924

REACTIONS (10)
  - Condition aggravated [Fatal]
  - Cardiac failure [Fatal]
  - Cerebellar artery occlusion [Recovering/Resolving]
  - Deep vein thrombosis [Recovering/Resolving]
  - Embolism [Recovering/Resolving]
  - Cerebrovascular accident [Recovering/Resolving]
  - Haemodynamic instability [Unknown]
  - Peripheral embolism [Unknown]
  - Thrombotic stroke [Unknown]
  - Arrhythmia [Unknown]

NARRATIVE: CASE EVENT DATE: 20241107
